FAERS Safety Report 23203625 (Version 1)
Quarter: 2023Q4

REPORT INFORMATION
  Report Type: Spontaneous
  Country: US (occurrence: US)
  Receive Date: 20231120
  Receipt Date: 20231120
  Transmission Date: 20240110
  Serious: No
  Sender: FDA-Public Use
  Company Number: US-ELI_LILLY_AND_COMPANY-US202311011026

PATIENT
  Age: 46 Year
  Sex: Female

DRUGS (5)
  1. TADALAFIL [Suspect]
     Active Substance: TADALAFIL
     Indication: Pulmonary arterial hypertension
     Dosage: UNK UNK, UNKNOWN
     Route: 065
  2. TADALAFIL [Suspect]
     Active Substance: TADALAFIL
     Dosage: 0.5 DOSAGE FORM, UNKNOWN
     Route: 065
  3. TYVASO [Suspect]
     Active Substance: TREPROSTINIL
     Indication: Pulmonary arterial hypertension
     Dosage: 16 UG, QID
     Route: 055
     Dates: start: 202310
  4. TYVASO [Suspect]
     Active Substance: TREPROSTINIL
     Dosage: 32 UG, QID
     Route: 055
  5. TYVASO [Suspect]
     Active Substance: TREPROSTINIL
     Dosage: 48 UG, QID
     Route: 055

REACTIONS (7)
  - Throat irritation [Not Recovered/Not Resolved]
  - Exercise tolerance decreased [Not Recovered/Not Resolved]
  - Cough [Not Recovered/Not Resolved]
  - Diarrhoea [Not Recovered/Not Resolved]
  - Hypotension [Not Recovered/Not Resolved]
  - Urticaria [Not Recovered/Not Resolved]
  - Nausea [Not Recovered/Not Resolved]

NARRATIVE: CASE EVENT DATE: 20231001
